FAERS Safety Report 16938704 (Version 2)
Quarter: 2020Q1

REPORT INFORMATION
  Report Type: Report from Study
  Country: US (occurrence: US)
  Receive Date: 20191019
  Receipt Date: 20200206
  Transmission Date: 20200409
  Serious: Yes (Other)
  Sender: FDA-Public Use
  Company Number: NVSC2019US004012

PATIENT
  Age: 88 Year
  Sex: Female

DRUGS (2)
  1. COSENTYX [Suspect]
     Active Substance: SECUKINUMAB
     Indication: PSORIASIS
     Dosage: UNK
     Route: 065
  2. COSENTYX [Suspect]
     Active Substance: SECUKINUMAB
     Indication: PSORIATIC ARTHROPATHY

REACTIONS (6)
  - Rash [Recovered/Resolved]
  - Therapeutic product effect incomplete [Unknown]
  - Mood altered [Unknown]
  - Urticaria [Recovered/Resolved]
  - Energy increased [Unknown]
  - Major depression [Recovering/Resolving]
